FAERS Safety Report 5458544-X (Version None)
Quarter: 2007Q3

REPORT INFORMATION
  Report Type: 
  Country: None (occurrence: None)
  Receive Date: 20070919
  Receipt Date: 20070910
  Transmission Date: 20080115
  Serious: Yes (Life-Threatening)
  Sender: FDA-Public Use
  Company Number: AU-AMGEN-US240201

PATIENT
  Sex: Male

DRUGS (4)
  1. ENBREL [Suspect]
     Indication: RHEUMATOID ARTHRITIS
     Dosage: 50 MG WEEKLY
     Route: 058
     Dates: start: 20070501, end: 20070801
  2. TRITACE [Concomitant]
     Indication: HYPERTENSION
     Route: 048
  3. NEXIUM [Concomitant]
     Indication: REFLUX OESOPHAGITIS
     Route: 048
  4. ALLOPURINOL [Concomitant]
     Indication: GOUT
     Route: 048

REACTIONS (1)
  - CARDIAC FAILURE CONGESTIVE [None]
